FAERS Safety Report 17975134 (Version 1)
Quarter: 2020Q3

REPORT INFORMATION
  Report Type: Report from Study
  Country: CN (occurrence: CN)
  Receive Date: 20200702
  Receipt Date: 20200702
  Transmission Date: 20201103
  Serious: Yes (Other)
  Sender: FDA-Public Use
  Company Number: CN-JNJFOC-20200633230

PATIENT

DRUGS (2)
  1. PREDNISONE. [Concomitant]
     Active Substance: PREDNISONE
     Indication: HORMONE-REFRACTORY PROSTATE CANCER
     Route: 065
  2. ABIRATERONE ACETATE. [Suspect]
     Active Substance: ABIRATERONE ACETATE
     Indication: HORMONE-REFRACTORY PROSTATE CANCER
     Route: 065

REACTIONS (9)
  - Hypertension [Unknown]
  - Rash pruritic [Unknown]
  - Asthenia [Unknown]
  - Discomfort [Unknown]
  - Fluid retention [Unknown]
  - Nausea [Unknown]
  - Blood potassium decreased [Unknown]
  - Cardiovascular disorder [Unknown]
  - Hepatic function abnormal [Unknown]
